FAERS Safety Report 5935272-5 (Version None)
Quarter: 2008Q4

REPORT INFORMATION
  Report Type: 
  Country: None (occurrence: None)
  Receive Date: 20081028
  Receipt Date: 20081013
  Transmission Date: 20090506
  Serious: Yes (Death, Hospitalization)
  Sender: FDA-Public Use
  Company Number: 2008000506

PATIENT
  Age: 70 Year
  Sex: Female

DRUGS (12)
  1. ERLOTINIB (ERLOTINIB) (TABLET) 9ERLOTINIB) [Suspect]
     Indication: LUNG SQUAMOUS CELL CARCINOMA STAGE UNSPECIFIED
     Dosage: (150 MG, QD), ORAL
     Route: 048
     Dates: start: 20080219, end: 20080221
  2. GENINAX [Concomitant]
  3. LASIX [Concomitant]
  4. ALDACTONE [Concomitant]
  5. FURSENNID (SENNA LEAF) [Concomitant]
  6. LOSARTAN POTASSIUM [Concomitant]
  7. DOGMATYL (SULPIRIDE) [Concomitant]
  8. ALUMINUM HYDROXIDE AND MAGNESIUM TRISILICATE [Concomitant]
  9. FERROMIA (FERROUS CITRATE) [Concomitant]
  10. FAMOTIDINE [Concomitant]
  11. MAGNESIUM OXIDE (MAGNESIUM OXIDE) [Concomitant]
  12. FENTANYL-100 [Concomitant]

REACTIONS (14)
  - AMNESIA [None]
  - ASPIRATION [None]
  - DELIRIUM [None]
  - DISORIENTATION [None]
  - GENERAL PHYSICAL HEALTH DETERIORATION [None]
  - INFLAMMATION [None]
  - LYMPHADENOPATHY [None]
  - PLEURAL EFFUSION [None]
  - PNEUMONIA [None]
  - PNEUMONIA BACTERIAL [None]
  - RESPIRATORY FAILURE [None]
  - RESTLESSNESS [None]
  - SOMNOLENCE [None]
  - SUICIDAL IDEATION [None]
